FAERS Safety Report 17393349 (Version 2)
Quarter: 2021Q2

REPORT INFORMATION
  Report Type: Report from Study
  Country: None (occurrence: CA)
  Receive Date: 20200208
  Receipt Date: 20210614
  Transmission Date: 20210716
  Serious: Yes (Other)
  Sender: FDA-Public Use
  Company Number: CA-ABBVIE-19K-028-2712101-00

PATIENT
  Age: 60 Year
  Sex: Male

DRUGS (2)
  1. HUMIRA [Suspect]
     Active Substance: ADALIMUMAB
     Indication: CROHN^S DISEASE
     Route: 058
     Dates: start: 20101221
  2. HUMIRA [Suspect]
     Active Substance: ADALIMUMAB
     Route: 058
     Dates: end: 20200103

REACTIONS (7)
  - Arthritis [Unknown]
  - Post procedural complication [Unknown]
  - Injection site pain [Not Recovered/Not Resolved]
  - Knee arthroplasty [Unknown]
  - Crohn^s disease [Recovered/Resolved]
  - Knee operation [Unknown]
  - Musculoskeletal foreign body [Unknown]

NARRATIVE: CASE EVENT DATE: 20190211
